FAERS Safety Report 13239883 (Version 1)
Quarter: 2017Q1

REPORT INFORMATION
  Report Type: Spontaneous
  Country: US (occurrence: US)
  Receive Date: 20170216
  Receipt Date: 20170216
  Transmission Date: 20170428
  Serious: Yes (Hospitalization)
  Sender: FDA-Public Use
  Company Number: US-RELYPSA-RLY2016003693

PATIENT
  Sex: Male

DRUGS (16)
  1. VELTASSA [Suspect]
     Active Substance: PATIROMER
     Indication: HYPERKALAEMIA
     Dosage: 8.4 G, QD
     Route: 048
     Dates: start: 20161008
  2. METOPROLOL. [Concomitant]
     Active Substance: METOPROLOL
  3. HCTZ [Concomitant]
     Active Substance: HYDROCHLOROTHIAZIDE
  4. VITAMIN D3 [Concomitant]
     Active Substance: CHOLECALCIFEROL
  5. MULTIVITAMIN [Concomitant]
     Active Substance: VITAMINS
  6. SIMVASTATIN. [Concomitant]
     Active Substance: SIMVASTATIN
  7. AMLODIPINE [Concomitant]
     Active Substance: AMLODIPINE BESYLATE
  8. ZOLPIDEM [Concomitant]
     Active Substance: ZOLPIDEM\ZOLPIDEM TARTRATE
  9. OXYCODONE [Concomitant]
     Active Substance: OXYCODONE
  10. TAMULOSIN [Concomitant]
     Active Substance: TAMSULOSIN
  11. LANTUS [Concomitant]
     Active Substance: INSULIN GLARGINE
  12. METOCLOPRAMIDE. [Concomitant]
     Active Substance: METOCLOPRAMIDE
  13. LATANOPROST. [Concomitant]
     Active Substance: LATANOPROST
  14. COMBIGAN [Concomitant]
     Active Substance: BRIMONIDINE TARTRATE\TIMOLOL MALEATE
  15. ESZOPICLONE. [Concomitant]
     Active Substance: ESZOPICLONE
  16. OMEPRAZOLE. [Concomitant]
     Active Substance: OMEPRAZOLE

REACTIONS (1)
  - Nausea [Unknown]

NARRATIVE: CASE EVENT DATE: 2016
